FAERS Safety Report 7108941-1 (Version None)
Quarter: 2010Q4

REPORT INFORMATION
  Report Type: 
  Country: None (occurrence: None)
  Receive Date: 20101117
  Receipt Date: 20101105
  Transmission Date: 20110411
  Serious: Yes (Other)
  Sender: FDA-Public Use
  Company Number: US-ELI_LILLY_AND_COMPANY-US201011001909

PATIENT
  Sex: Female

DRUGS (4)
  1. HUMALOG MIX 75/25 [Suspect]
     Indication: DIABETES MELLITUS
     Dosage: 30 U, EACH MORNING
  2. HUMALOG MIX 75/25 [Suspect]
     Dosage: 40 U, EACH EVENING
  3. HUMALOG MIX 75/25 [Suspect]
     Dosage: 30 U, EACH MORNING
  4. HUMALOG MIX 75/25 [Suspect]
     Dosage: 40 U, EACH EVENING

REACTIONS (5)
  - DIABETES MELLITUS INADEQUATE CONTROL [None]
  - DIABETIC RETINOPATHY [None]
  - DIZZINESS [None]
  - DRUG DOSE OMISSION [None]
  - FEELING ABNORMAL [None]
